FAERS Safety Report 15937837 (Version 1)
Quarter: 2019Q1

REPORT INFORMATION
  Report Type: Spontaneous
  Country: US (occurrence: US)
  Receive Date: 20190208
  Receipt Date: 20190208
  Transmission Date: 20190417
  Serious: Yes (Other)
  Sender: FDA-Public Use
  Company Number: US-ELI_LILLY_AND_COMPANY-US201901013797

PATIENT
  Sex: Female

DRUGS (1)
  1. FORTEO [Suspect]
     Active Substance: TERIPARATIDE
     Indication: PRODUCT USED FOR UNKNOWN INDICATION
     Dosage: UNK, UNKNOWN
     Route: 065
     Dates: end: 20190123

REACTIONS (8)
  - Dizziness [Recovering/Resolving]
  - Fall [Recovering/Resolving]
  - Loss of consciousness [Recovering/Resolving]
  - Pain [Recovering/Resolving]
  - Contusion [Recovering/Resolving]
  - Pain in extremity [Recovering/Resolving]
  - Blood pressure increased [Recovering/Resolving]
  - Eye contusion [Recovering/Resolving]

NARRATIVE: CASE EVENT DATE: 20190123
